FAERS Safety Report 13465028 (Version 1)
Quarter: 2017Q2

REPORT INFORMATION
  Report Type: Spontaneous
  Country: US (occurrence: US)
  Receive Date: 20170421
  Receipt Date: 20170421
  Transmission Date: 20170830
  Serious: Yes (Other)
  Sender: FDA-Public Use
  Company Number: US-ROCHE-722655

PATIENT
  Age: 17 Year
  Sex: Male
  Weight: 78 kg

DRUGS (1)
  1. ACCUTANE [Suspect]
     Active Substance: ISOTRETINOIN
     Indication: ACNE
     Route: 065
     Dates: start: 19950907, end: 19960712

REACTIONS (6)
  - Gastrointestinal injury [Unknown]
  - Colitis ulcerative [Unknown]
  - Blood alkaline phosphatase increased [Recovered/Resolved]
  - Epistaxis [Unknown]
  - Blood triglycerides increased [Unknown]
  - Erythema [Unknown]

NARRATIVE: CASE EVENT DATE: 19951002
